FAERS Safety Report 6269207-5 (Version None)
Quarter: 2009Q3

REPORT INFORMATION
  Report Type: 
  Country: None (occurrence: None)
  Receive Date: 20090715
  Receipt Date: 20090703
  Transmission Date: 20100115
  Serious: Yes (Death, Life-Threatening, Hospitalization)
  Sender: FDA-Public Use
  Company Number: RS-BAYER-200923790GPV

PATIENT
  Age: 41 Year
  Sex: Female

DRUGS (3)
  1. MAGNEVIST [Suspect]
     Indication: NUCLEAR MAGNETIC RESONANCE IMAGING BRAIN
     Dosage: 0.2 ML/KG
     Route: 042
     Dates: start: 20090615, end: 20090615
  2. MONOCLONAL ANTIBODIES NOS [Concomitant]
     Indication: MULTIPLE SCLEROSIS
     Route: 065
     Dates: start: 20090301, end: 20090301
  3. MONOCLONAL ANTIBODIES NOS [Concomitant]
     Dosage: ENROLLED IN CLINICAL TRIAL WITH MONOCLONAL ANTIBODY, RECEIVED STUDY MEDICATION 90 AND 75 DAYS BEFORE
     Route: 065
     Dates: start: 20090401, end: 20090401

REACTIONS (8)
  - COMA [None]
  - CONVULSION [None]
  - DISCOMFORT [None]
  - HEPATORENAL SYNDROME [None]
  - PANCREATITIS ACUTE [None]
  - PYREXIA [None]
  - RENAL FAILURE ACUTE [None]
  - SEPSIS [None]
